FAERS Safety Report 4990047-9 (Version None)
Quarter: 2006Q2

REPORT INFORMATION
  Report Type: 
  Country: None (occurrence: None)
  Receive Date: 20060427
  Receipt Date: 20060420
  Transmission Date: 20061013
  Serious: Yes (Hospitalization)
  Sender: FDA-Public Use
  Company Number: UKP06000111

PATIENT
  Age: 64 Year
  Sex: Male
  Weight: 75 kg

DRUGS (2)
  1. ASACOL [Suspect]
     Indication: COLITIS
     Dosage: 800 MG, 2/DAY, ORAL
     Route: 048
     Dates: start: 20051129, end: 20060320
  2. PREDNISONE TAB [Concomitant]

REACTIONS (2)
  - CHOLELITHIASIS [None]
  - PANCREATITIS [None]
